FAERS Safety Report 9702992 (Version 7)
Quarter: 2016Q1

REPORT INFORMATION
  Report Type: Report from Study
  Country: VE (occurrence: VE)
  Receive Date: 20131122
  Receipt Date: 20160311
  Transmission Date: 20160526
  Serious: Yes (Hospitalization, Other)
  Sender: FDA-Public Use
  Company Number: VE-ROCHE-1303385

PATIENT
  Age: 73 Year
  Sex: Female

DRUGS (16)
  1. XOLAIR [Suspect]
     Active Substance: OMALIZUMAB
     Route: 058
     Dates: start: 201405
  2. FORADIL [Suspect]
     Active Substance: FORMOTEROL FUMARATE
     Dosage: DOSE REDUCED
     Route: 055
  3. ATORVASTATIN [Concomitant]
     Active Substance: ATORVASTATIN
  4. XOLAIR [Suspect]
     Active Substance: OMALIZUMAB
     Route: 058
     Dates: start: 201401
  5. MIFLONIDE [Suspect]
     Active Substance: BUDESONIDE
     Dosage: DOSE REDUCED
     Route: 055
  6. SPIRIVA [Concomitant]
     Active Substance: TIOTROPIUM BROMIDE MONOHYDRATE
     Route: 048
     Dates: start: 2010
  7. EUTHYROX [Concomitant]
     Active Substance: LEVOTHYROXINE SODIUM
  8. XOLAIR [Suspect]
     Active Substance: OMALIZUMAB
     Indication: ASTHMA
     Route: 058
     Dates: start: 20110211, end: 20111211
  9. MIFLONIDE [Suspect]
     Active Substance: BUDESONIDE
     Indication: ASTHMA
     Route: 055
     Dates: start: 201109
  10. FORADIL [Suspect]
     Active Substance: FORMOTEROL FUMARATE
     Dosage: 4 INHALATION DAILY
     Route: 048
     Dates: start: 201203
  11. BERODUAL [Concomitant]
     Active Substance: FENOTEROL HYDROBROMIDE\IPRATROPIUM BROMIDE
     Route: 065
     Dates: start: 201109
  12. XOLAIR [Suspect]
     Active Substance: OMALIZUMAB
     Indication: CHRONIC OBSTRUCTIVE PULMONARY DISEASE
     Route: 058
     Dates: start: 201203, end: 201401
  13. ONBREZ [Suspect]
     Active Substance: INDACATEROL
     Indication: ASTHMA
     Route: 055
     Dates: start: 201103, end: 201109
  14. FORADIL [Suspect]
     Active Substance: FORMOTEROL FUMARATE
     Indication: ASTHMA
     Route: 055
     Dates: start: 201109
  15. ALDACTAZIDE [Concomitant]
     Active Substance: HYDROCHLOROTHIAZIDE\SPIRONOLACTONE
  16. MIFLONIDE [Suspect]
     Active Substance: BUDESONIDE
     Dosage: 4 INHALATION DAILY
     Route: 048
     Dates: start: 201203, end: 20140501

REACTIONS (11)
  - Malaise [Not Recovered/Not Resolved]
  - Cough [Not Recovered/Not Resolved]
  - Asthma [Not Recovered/Not Resolved]
  - Chest discomfort [Not Recovered/Not Resolved]
  - Dizziness [Unknown]
  - Influenza [Not Recovered/Not Resolved]
  - Asthmatic crisis [Recovering/Resolving]
  - Oxygen consumption increased [Unknown]
  - General physical health deterioration [Unknown]
  - Drug ineffective [Unknown]
  - Anxiety [Unknown]

NARRATIVE: CASE EVENT DATE: 201103
